FAERS Safety Report 23079729 (Version 3)
Quarter: 2023Q4

REPORT INFORMATION
  Report Type: Spontaneous
  Country: FR (occurrence: FR)
  Receive Date: 20231018
  Receipt Date: 20231225
  Transmission Date: 20240109
  Serious: Yes (Other)
  Sender: FDA-Public Use
  Company Number: FR-JNJFOC-20230957492

PATIENT
  Age: 77 Year
  Sex: Male
  Weight: 69 kg

DRUGS (9)
  1. TECVAYLI [Suspect]
     Active Substance: TECLISTAMAB-CQYV
     Indication: Plasma cell myeloma refractory
     Dosage: 3 DOSES?ADMINISTRATION OF THE 1ST DOSE LEVEL
     Route: 058
     Dates: start: 20230829
  2. TECVAYLI [Suspect]
     Active Substance: TECLISTAMAB-CQYV
     Dosage: 2ND LEVEL OF TECLISTAMAB: NO COMPLICATIONS
     Route: 058
     Dates: start: 20230905, end: 20230907
  3. TECVAYLI [Suspect]
     Active Substance: TECLISTAMAB-CQYV
     Dosage: NO COMPLETION OF THE THIRD LEVEL OF TECLISTAMAB
     Route: 058
     Dates: start: 20230911
  4. TECVAYLI [Suspect]
     Active Substance: TECLISTAMAB-CQYV
     Dosage: RESUMPTION OF A 2ND THEORETICAL LEVEL
     Route: 058
     Dates: start: 20230918, end: 20230922
  5. TECVAYLI [Suspect]
     Active Substance: TECLISTAMAB-CQYV
     Dosage: 2ND LEVEL: GOOD TOLERANCE
     Route: 058
     Dates: start: 20230925, end: 20230927
  6. TECVAYLI [Suspect]
     Active Substance: TECLISTAMAB-CQYV
     Dosage: LAST LEVEL: GOOD IMMEDIATE TOLERANCE.
     Route: 058
     Dates: start: 20231002, end: 20231004
  7. DEXAMETHASONE [Concomitant]
     Active Substance: DEXAMETHASONE
     Indication: Product used for unknown indication
     Route: 065
  8. LYRICA [Concomitant]
     Active Substance: PREGABALIN
     Indication: Product used for unknown indication
     Dosage: GIVEN THE PERSISTENCE OF UNKNOWN INDICATION
     Route: 065
  9. CYCLOPHOSPHAMIDE [Concomitant]
     Active Substance: CYCLOPHOSPHAMIDE
     Indication: Product used for unknown indication
     Route: 065

REACTIONS (3)
  - Cytokine release syndrome [Recovering/Resolving]
  - Enterobacter bacteraemia [Unknown]
  - Klebsiella bacteraemia [Unknown]

NARRATIVE: CASE EVENT DATE: 20230831
